FAERS Safety Report 6194234-6 (Version None)
Quarter: 2009Q2

REPORT INFORMATION
  Report Type: 
  Country: None (occurrence: None)
  Receive Date: 20090511
  Receipt Date: 20090501
  Transmission Date: 20091009
  Serious: Yes (Hospitalization, Other)
  Sender: FDA-Public Use
  Company Number: AECAN200900110

PATIENT
  Age: 62 Year
  Sex: Male

DRUGS (2)
  1. GAMUNEX [Suspect]
     Indication: POLYMYOSITIS
     Dosage: UNKNOWN; IV
     Route: 042
     Dates: start: 20090323, end: 20090324
  2. IMMUNE GLOBULIN INTRAVENOUS (HUMAN) [Suspect]
     Indication: POLYMYOSITIS
     Dosage: UNKNOWN; IV
     Route: 042
     Dates: start: 20090323, end: 20090324

REACTIONS (2)
  - LOSS OF CONSCIOUSNESS [None]
  - MYOCARDIAL INFARCTION [None]
